FAERS Safety Report 5920966-8 (Version None)
Quarter: 2008Q4

REPORT INFORMATION
  Report Type: 
  Country: None (occurrence: None)
  Receive Date: 20081016
  Receipt Date: 20081006
  Transmission Date: 20090506
  Serious: Yes (Death, Hospitalization)
  Sender: FDA-Public Use
  Company Number: FR-WYE-H06358508

PATIENT
  Sex: Female

DRUGS (3)
  1. CORDARONE [Suspect]
     Route: 048
     Dates: start: 20080701, end: 20080101
  2. CORDARONE [Suspect]
     Dosage: 200 MG ONCE
     Dates: start: 20080819, end: 20080819
  3. FLECAINIDE ACETATE [Concomitant]

REACTIONS (6)
  - ABDOMINAL PAIN [None]
  - BRADYCARDIA [None]
  - BRADYPNOEA [None]
  - CIRCULATORY COLLAPSE [None]
  - HYPOTENSION [None]
  - SHOCK [None]
